FAERS Safety Report 23717320 (Version 1)
Quarter: 2024Q2

REPORT INFORMATION
  Report Type: Spontaneous
  Country: FR (occurrence: FR)
  Receive Date: 20240408
  Receipt Date: 20240408
  Transmission Date: 20240716
  Serious: Yes (Hospitalization)
  Sender: FDA-Public Use
  Company Number: None

PATIENT
  Age: 61 Year
  Sex: Female
  Weight: 75.9 kg

DRUGS (6)
  1. CARBOPLATIN [Suspect]
     Active Substance: CARBOPLATIN
     Indication: Bladder cancer
     Dosage: STRENGTH: 10 MG/ML, SOLUTION FOR INFUSION
     Dates: start: 20231204, end: 20231204
  2. ETOPOPHOS [Suspect]
     Active Substance: ETOPOSIDE PHOSPHATE
     Indication: Bladder cancer
     Dosage: 100 MG, LYOPHILISATE FOR PARENTERAL USE
     Dates: start: 20231017, end: 20231017
  3. ETOPOPHOS [Suspect]
     Active Substance: ETOPOSIDE PHOSPHATE
     Indication: Bladder cancer
     Dosage: 100 MG, LYOPHILISATE FOR PARENTERAL USE
     Dates: start: 20231204, end: 20231204
  4. CARBOPLATIN [Suspect]
     Active Substance: CARBOPLATIN
     Indication: Bladder cancer
     Dosage: STRENGTH: 10 MG/ML, SOLUTION FOR INFUSION
     Dates: start: 20231107, end: 20231107
  5. CARBOPLATIN [Suspect]
     Active Substance: CARBOPLATIN
     Indication: Bladder cancer
     Dosage: STRENGTH: 10 MG/ML, SOLUTION FOR INFUSION
     Dates: start: 20231017, end: 20231017
  6. ETOPOPHOS [Suspect]
     Active Substance: ETOPOSIDE PHOSPHATE
     Indication: Bladder cancer
     Dosage: 100 MG, LYOPHILISATE FOR PARENTERAL USE
     Dates: start: 20231107, end: 20231107

REACTIONS (2)
  - Paraesthesia [Recovering/Resolving]
  - Motor dysfunction [Recovering/Resolving]

NARRATIVE: CASE EVENT DATE: 20231107
